FAERS Safety Report 23495031 (Version 2)
Quarter: 2024Q1

REPORT INFORMATION
  Report Type: Other
  Country: JP (occurrence: JP)
  Receive Date: 20240207
  Receipt Date: 20240314
  Transmission Date: 20240409
  Serious: Yes (Hospitalization, Other)
  Sender: FDA-Public Use
  Company Number: JP-UROVANT SCIENCES GMBH-202401-URV-000156

PATIENT
  Age: 81 Year
  Sex: Male

DRUGS (4)
  1. VIBEGRON [Suspect]
     Active Substance: VIBEGRON
     Indication: Pollakiuria
     Dosage: 50 MG, QD
     Route: 048
     Dates: start: 20231127, end: 20231205
  2. CARBIDOPA\LEVODOPA [Concomitant]
     Active Substance: CARBIDOPA\LEVODOPA
     Indication: Product used for unknown indication
     Route: 048
  3. MIYA-BM [Concomitant]
     Active Substance: CLOSTRIDIUM BUTYRICUM SPORES STRAIN M-55
     Indication: Product used for unknown indication
     Route: 048
  4. MAGNESIUM OXIDE [Concomitant]
     Active Substance: MAGNESIUM OXIDE
     Indication: Product used for unknown indication
     Route: 048

REACTIONS (1)
  - Postrenal failure [Recovered/Resolved]

NARRATIVE: CASE EVENT DATE: 20231127
